FAERS Safety Report 7717807-5 (Version None)
Quarter: 2011Q3

REPORT INFORMATION
  Report Type: 
  Country: None (occurrence: None)
  Receive Date: 20110830
  Receipt Date: 20110818
  Transmission Date: 20111222
  Serious: Yes (Hospitalization)
  Sender: FDA-Public Use
  Company Number: CA-SANOFI-AVENTIS-2011SA044382

PATIENT
  Age: 75 Year
  Sex: Male
  Weight: 81 kg

DRUGS (13)
  1. AMLODIPINE [Concomitant]
     Route: 065
     Dates: start: 20110216
  2. CLOPIDOGREL [Concomitant]
     Route: 065
  3. ATORVASTATIN [Concomitant]
     Route: 065
  4. ASPIRIN [Concomitant]
     Route: 065
     Dates: start: 20110225
  5. PERINDOPRIL [Concomitant]
     Route: 065
     Dates: start: 20110307
  6. AMLODIPINE [Concomitant]
     Route: 065
  7. ASPIRIN [Concomitant]
     Route: 065
  8. TAMSULOSIN HCL [Concomitant]
     Route: 065
     Dates: end: 20110303
  9. DRONEDARONE HCL [Suspect]
     Indication: ATRIAL FIBRILLATION
     Route: 048
     Dates: start: 20110222, end: 20110312
  10. BISOPROLOL FUMARATE [Concomitant]
     Route: 065
     Dates: end: 20110305
  11. PERINDOPRIL [Concomitant]
     Route: 065
  12. WARFARIN SODIUM [Concomitant]
     Route: 065
  13. CEFUROXIME [Concomitant]
     Route: 065
     Dates: start: 20110226, end: 20110227

REACTIONS (3)
  - CARDIAC FAILURE [None]
  - ANGINA UNSTABLE [None]
  - PNEUMONIA [None]
